FAERS Safety Report 23986383 (Version 1)
Quarter: 2024Q2

REPORT INFORMATION
  Report Type: Spontaneous
  Country: US (occurrence: None)
  Receive Date: 20240618
  Receipt Date: 20240618
  Transmission Date: 20240715
  Serious: Yes (Hospitalization)
  Sender: FDA-Public Use
  Company Number: None

PATIENT
  Age: 79 Year
  Sex: Female
  Weight: 52.71 kg

DRUGS (3)
  1. DARATUMUMAB\HYALURONIDASE-FIHJ [Suspect]
     Active Substance: DARATUMUMAB\HYALURONIDASE-FIHJ
  2. DEXAMETHASONE [Suspect]
     Active Substance: DEXAMETHASONE
  3. LENALIDOMIDE [Suspect]
     Active Substance: LENALIDOMIDE

REACTIONS (10)
  - Renal failure [None]
  - Cough [None]
  - Feeling abnormal [None]
  - Urinary retention [None]
  - Pneumonia [None]
  - Dialysis [None]
  - Therapy interrupted [None]
  - Lung opacity [None]
  - Infection [None]
  - Pleural effusion [None]

NARRATIVE: CASE EVENT DATE: 20220712
